FAERS Safety Report 18128530 (Version 1)
Quarter: 2020Q3

REPORT INFORMATION
  Report Type: Spontaneous
  Country: US (occurrence: US)
  Receive Date: 20200808
  Receipt Date: 20200808
  Transmission Date: 20201103
  Serious: No
  Sender: FDA-Public Use
  Company Number: None

PATIENT
  Age: 40 Year
  Sex: Male
  Weight: 85.5 kg

DRUGS (1)
  1. MIGHTY GOOD HAND SANITIZER, 70%V [Suspect]
     Active Substance: ALCOHOL
     Indication: COVID-19 PROPHYLAXIS
     Dosage: ?          QUANTITY:1 GALLON;?
     Route: 061

REACTIONS (4)
  - Skin burning sensation [None]
  - Erythema [None]
  - Product odour abnormal [None]
  - Pruritus [None]

NARRATIVE: CASE EVENT DATE: 20200808
